FAERS Safety Report 20355821 (Version 1)
Quarter: 2022Q1

REPORT INFORMATION
  Report Type: Spontaneous
  Country: US (occurrence: None)
  Receive Date: 20220120
  Receipt Date: 20220120
  Transmission Date: 20220423
  Serious: Yes (Other)
  Sender: FDA-Public Use
  Company Number: US-Fresenius Kabi-FK202200705

PATIENT
  Age: 30 Year
  Sex: Female

DRUGS (4)
  1. FLUOROURACIL [Suspect]
     Active Substance: FLUOROURACIL
     Indication: Metastases to spinal cord
     Dosage: FOLFOX REGIMEN
     Route: 065
  2. OXALIPLATIN [Suspect]
     Active Substance: OXALIPLATIN
     Indication: Metastases to spinal cord
     Dosage: FOLFOX REGIMEN
     Route: 065
  3. LEUCOVORIN [Suspect]
     Active Substance: LEUCOVORIN
     Indication: Metastases to spinal cord
     Dosage: FOLINIC ACID [LEUCOVORIN] ?(FOLFOX REGIMEN)
     Route: 065
  4. BEVACIZUMAB [Suspect]
     Active Substance: BEVACIZUMAB
     Indication: Metastases to spinal cord
     Route: 065

REACTIONS (2)
  - Neuropathy peripheral [Unknown]
  - Aorto-oesophageal fistula [Unknown]
